FAERS Safety Report 4971175-0 (Version None)
Quarter: 2006Q1

REPORT INFORMATION
  Report Type: 
  Country: None (occurrence: None)
  Receive Date: 20060222
  Receipt Date: 20050321
  Transmission Date: 20060701
  Serious: Yes (Other)
  Sender: FDA-Public Use
  Company Number: HQWYE428028MAR05

PATIENT
  Age: 48 Year
  Sex: Female
  Weight: 59.02 kg

DRUGS (4)
  1. PROTONIX [Suspect]
     Indication: DUODENAL ULCER
     Dosage: 40 MG 1X PER 1 DAY, ORAL
     Route: 048
     Dates: start: 20050201, end: 20050201
  2. LEVOXYL [Concomitant]
  3. PULMICORT [Concomitant]
  4. ALBUTEROL [Concomitant]

REACTIONS (5)
  - ABDOMINAL DISTENSION [None]
  - FLATULENCE [None]
  - OEDEMA PERIPHERAL [None]
  - URTICARIA [None]
  - WHEEZING [None]
